FAERS Safety Report 12929092 (Version 1)
Quarter: 2016Q4

REPORT INFORMATION
  Report Type: Spontaneous
  Country: CN (occurrence: CN)
  Receive Date: 20161110
  Receipt Date: 20161110
  Transmission Date: 20170207
  Serious: Yes (Life-Threatening, Hospitalization, Disabling, Other)
  Sender: FDA-Public Use
  Company Number: CN-PFIZER INC-2016515325

PATIENT
  Age: 54 Year
  Sex: Female
  Weight: 66 kg

DRUGS (2)
  1. CYTOSAR [Suspect]
     Active Substance: CYTARABINE
     Dosage: 2 G, 1X/DAY
     Route: 041
     Dates: start: 20160907, end: 20160908
  2. CYTOSAR [Suspect]
     Active Substance: CYTARABINE
     Indication: ACUTE MYELOID LEUKAEMIA
     Dosage: 2 G, 1X/DAY
     Route: 041
     Dates: start: 20160904, end: 20160906

REACTIONS (10)
  - Bone marrow failure [Not Recovered/Not Resolved]
  - Vomiting [Unknown]
  - Depressed level of consciousness [Unknown]
  - Heart rate decreased [Unknown]
  - Headache [Unknown]
  - Oxygen saturation decreased [Unknown]
  - Dizziness [Unknown]
  - Nausea [Unknown]
  - Haemorrhage [Not Recovered/Not Resolved]
  - Infection [Not Recovered/Not Resolved]

NARRATIVE: CASE EVENT DATE: 20160909
